FAERS Safety Report 9620649 (Version 1)
Quarter: 2013Q4

REPORT INFORMATION
  Report Type: Spontaneous
  Country: DE (occurrence: DE)
  Receive Date: 20131015
  Receipt Date: 20131015
  Transmission Date: 20140711
  Serious: Yes (Death, Other)
  Sender: FDA-Public Use
  Company Number: DE-JNJFOC-20131004894

PATIENT
  Sex: 0

DRUGS (2)
  1. PARACETAMOL [Suspect]
     Indication: PAIN
     Route: 065
  2. PARACETAMOL [Suspect]
     Indication: PYREXIA
     Route: 065

REACTIONS (3)
  - Death [Fatal]
  - Thrombolysis [Unknown]
  - Cerebrovascular accident [Unknown]
